FAERS Safety Report 12314517 (Version 1)
Quarter: 2016Q2

REPORT INFORMATION
  Report Type: Spontaneous
  Country: US (occurrence: US)
  Receive Date: 20160428
  Receipt Date: 20160428
  Transmission Date: 20160815
  Serious: Yes (Hospitalization, Other)
  Sender: FDA-Public Use
  Company Number: US-GLAXOSMITHKLINE-US2016GSK059257

PATIENT
  Sex: Female

DRUGS (2)
  1. DULERA [Concomitant]
     Active Substance: FORMOTEROL FUMARATE DIHYDRATE\MOMETASONE FUROATE
  2. ADVAIR HFA [Suspect]
     Active Substance: FLUTICASONE PROPIONATE\SALMETEROL XINAFOATE
     Indication: ASTHMA
     Dosage: 250 UG, UNK

REACTIONS (12)
  - Gastrointestinal disorder [Unknown]
  - Cerebrovascular accident [Unknown]
  - Fibromyalgia [Unknown]
  - Cyanosis [Unknown]
  - Heat stroke [Unknown]
  - Hospitalisation [Unknown]
  - Upper respiratory tract congestion [Unknown]
  - Thrombosis [Unknown]
  - Rubber sensitivity [Unknown]
  - Unresponsive to stimuli [Unknown]
  - General physical condition abnormal [Unknown]
  - Stress [Unknown]
